FAERS Safety Report 18158049 (Version 1)
Quarter: 2020Q3

REPORT INFORMATION
  Report Type: Spontaneous
  Country: US (occurrence: US)
  Receive Date: 20200817
  Receipt Date: 20200817
  Transmission Date: 20201103
  Serious: No
  Sender: FDA-Public Use
  Company Number: US-MEDEXUS PHARMA, INC.-2020MED00133

PATIENT
  Age: 75 Year
  Sex: Female
  Weight: 61.22 kg

DRUGS (3)
  1. FOLIC ACID. [Concomitant]
     Active Substance: FOLIC ACID
  2. PEPCID [Concomitant]
     Active Substance: FAMOTIDINE
  3. RASUVO [Suspect]
     Active Substance: METHOTREXATE SODIUM
     Indication: RHEUMATOID ARTHRITIS
     Dosage: 15 MG, 1X/WEEK ON WEDNESDAYS INJECTED INTO LEGS AND/OR ABDOMEN

REACTIONS (5)
  - Device delivery system issue [Recovered/Resolved]
  - Arthralgia [Recovering/Resolving]
  - Device failure [Recovered/Resolved]
  - Accidental exposure to product [Recovered/Resolved]
  - Fatigue [Recovering/Resolving]

NARRATIVE: CASE EVENT DATE: 202005
